FAERS Safety Report 24102214 (Version 1)
Quarter: 2024Q3

REPORT INFORMATION
  Report Type: Spontaneous
  Country: US (occurrence: US)
  Receive Date: 20240717
  Receipt Date: 20240717
  Transmission Date: 20241017
  Serious: No
  Sender: NOVO NORDISK
  Company Number: US-NOVOPROD-1191862

PATIENT
  Age: 63 Year
  Sex: Male

DRUGS (4)
  1. OZEMPIC [Suspect]
     Active Substance: SEMAGLUTIDE
     Indication: Product used for unknown indication
     Dosage: UNK
     Route: 058
  2. OFEV [Suspect]
     Active Substance: NINTEDANIB
     Indication: Interstitial lung disease
     Dosage: 300 MG, QD (150 MG 1 EVERY 12 HOUR (THERAPY 2))
     Route: 048
     Dates: start: 20230616, end: 20230809
  3. OFEV [Suspect]
     Active Substance: NINTEDANIB
     Indication: Idiopathic pulmonary fibrosis
     Dosage: 300 MG, QD(150 MG 1 EVERY 12 HOUR (THERAPY 1))
     Route: 048
     Dates: start: 20230529, end: 20230602
  4. OFEV [Suspect]
     Active Substance: NINTEDANIB
     Dosage: 200 MG, QD (100 MG 1 EVERY 12 HOUR (THERAPY 3))
     Route: 048
     Dates: start: 20231115

REACTIONS (7)
  - Decreased appetite [Not Recovered/Not Resolved]
  - Vomiting [Recovered/Resolved]
  - Nausea [Recovered/Resolved]
  - Vomiting [Recovered/Resolved]
  - Vomiting [Recovered/Resolved]
  - Diarrhoea [Recovered/Resolved]
  - Dysgeusia [Recovered/Resolved]

NARRATIVE: CASE EVENT DATE: 20230602
